FAERS Safety Report 6679934-3 (Version None)
Quarter: 2010Q2

REPORT INFORMATION
  Report Type: 
  Country: None (occurrence: None)
  Receive Date: 20100409
  Receipt Date: 20100401
  Transmission Date: 20101027
  Serious: Yes (Hospitalization)
  Sender: FDA-Public Use
  Company Number: 10-000480

PATIENT
  Age: 86 Year
  Sex: Female
  Weight: 72.1 kg

DRUGS (10)
  1. ESTRACE [Suspect]
     Indication: VAGINAL DISORDER
     Dosage: VAGINAL
     Route: 067
     Dates: start: 20060101
  2. AMIODARONE HCL [Concomitant]
  3. COUMADIN [Concomitant]
  4. SYNTHROID [Concomitant]
  5. NORVASC [Concomitant]
  6. PREVACID [Concomitant]
  7. PEPCID (CALCIUM CARBONATE, POTASSIUM CHLORIDE) [Concomitant]
  8. POTASSIUM (POTASSIUM BICARBONATE, POTASSIUM CHLORIDE) [Concomitant]
  9. LASIX [Concomitant]
  10. METOLAZONE [Concomitant]

REACTIONS (5)
  - ARTHRALGIA [None]
  - MALAISE [None]
  - NAUSEA [None]
  - PROTEUS INFECTION [None]
  - URINARY TRACT INFECTION PSEUDOMONAL [None]
